FAERS Safety Report 5851541-1 (Version None)
Quarter: 2008Q3

REPORT INFORMATION
  Report Type: 
  Country: None (occurrence: None)
  Receive Date: 20080820
  Receipt Date: 20080812
  Transmission Date: 20090109
  Serious: Yes (Other)
  Sender: FDA-Public Use
  Company Number: US-WYE-H05563208

PATIENT
  Sex: Female
  Weight: 24.52 kg

DRUGS (1)
  1. ZOSYN [Suspect]
     Indication: CHOLECYSTITIS INFECTIVE
     Dosage: ^333 MG EVERY 6 HOURS AND THEN 400 MG EVERY 8 HOURS^
     Route: 042
     Dates: start: 20080522, end: 20080528

REACTIONS (3)
  - ATRIAL CONDUCTION TIME PROLONGATION [None]
  - BRADYCARDIA [None]
  - SINUS ARRHYTHMIA [None]
